FAERS Safety Report 13292607 (Version 1)
Quarter: 2017Q1

REPORT INFORMATION
  Report Type: Spontaneous
  Country: GB (occurrence: GB)
  Receive Date: 20170303
  Receipt Date: 20170303
  Transmission Date: 20170428
  Serious: Yes (Disabling, Other)
  Sender: FDA-Public Use
  Company Number: PHHY2017GB027929

PATIENT
  Age: 22 Year
  Sex: Female
  Weight: 60.77 kg

DRUGS (2)
  1. SERTRALINE [Concomitant]
     Active Substance: SERTRALINE HYDROCHLORIDE
     Indication: PRODUCT USED FOR UNKNOWN INDICATION
     Route: 065
  2. PROPRANOLOL [Suspect]
     Active Substance: PROPRANOLOL HYDROCHLORIDE
     Indication: SEIZURE
     Dosage: AT NIGHT
     Route: 048
     Dates: start: 20170125

REACTIONS (6)
  - Dizziness [Recovered/Resolved]
  - Muscular weakness [Unknown]
  - Asthenia [Recovered/Resolved]
  - Seizure [Recovered/Resolved]
  - Condition aggravated [Unknown]
  - Prescribed overdose [Unknown]
